FAERS Safety Report 6368641-2 (Version None)
Quarter: 2009Q3

REPORT INFORMATION
  Report Type: 
  Country: None (occurrence: None)
  Receive Date: 20090922
  Receipt Date: 20090908
  Transmission Date: 20100115
  Serious: Yes (Other)
  Sender: FDA-Public Use
  Company Number: US-PFIZER INC-2009266235

PATIENT
  Sex: Female
  Weight: 79.365 kg

DRUGS (5)
  1. LYRICA [Suspect]
     Indication: FIBROMYALGIA
     Dosage: 25 MG, 1X/DAY
     Route: 048
     Dates: start: 20070101
  2. LYRICA [Suspect]
     Indication: ARTHRITIS
  3. ARTHROTEC [Suspect]
     Indication: ARTHRITIS
     Dosage: UNK
     Dates: end: 20080101
  4. MORPHINE SULFATE [Concomitant]
     Indication: PAIN
     Dosage: 20 MG, 2X/DAY
     Route: 048
  5. NORCO [Concomitant]
     Indication: PAIN
     Dosage: 10/325MG TWO TIMES DAILY
     Route: 048

REACTIONS (10)
  - DIZZINESS [None]
  - DRUG INEFFECTIVE [None]
  - FALL [None]
  - FEELING ABNORMAL [None]
  - GASTRIC HAEMORRHAGE [None]
  - INSOMNIA [None]
  - LIMB OPERATION [None]
  - RASH [None]
  - SOMNOLENCE [None]
  - WEIGHT INCREASED [None]
